FAERS Safety Report 8177162-6 (Version None)
Quarter: 2012Q1

REPORT INFORMATION
  Report Type: 
  Country: None (occurrence: None)
  Receive Date: 20120301
  Receipt Date: 20120228
  Transmission Date: 20120608
  Serious: Yes (Other)
  Sender: FDA-Public Use
  Company Number: BD-GLAXOSMITHKLINE-B0784980A

PATIENT
  Age: 45 Year
  Sex: Male

DRUGS (1)
  1. CEFUROXIME [Suspect]
     Indication: RESPIRATORY TRACT INFECTION
     Dosage: 500MG TWICE PER DAY
     Route: 048
     Dates: start: 20120223, end: 20120226

REACTIONS (1)
  - RESPIRATORY DISTRESS [None]
